FAERS Safety Report 22398111 (Version 1)
Quarter: 2023Q2

REPORT INFORMATION
  Report Type: Spontaneous
  Country: CN (occurrence: CN)
  Receive Date: 20230602
  Receipt Date: 20230602
  Transmission Date: 20230722
  Serious: Yes (Hospitalization, Other)
  Sender: FDA-Public Use
  Company Number: CN-SUN PHARMACEUTICAL INDUSTRIES LTD-2023R1-392379

PATIENT
  Age: 35 Year
  Sex: Male

DRUGS (2)
  1. CALCITRIOL [Suspect]
     Active Substance: CALCITRIOL
     Indication: Blood calcium decreased
     Dosage: 0.25 MICROGRAM, BID
     Route: 065
  2. CALCIUM CARBONATE [Suspect]
     Active Substance: CALCIUM CARBONATE
     Indication: Blood calcium decreased
     Dosage: 600 MILLIGRAM, BID
     Route: 065

REACTIONS (1)
  - Gastrointestinal haemorrhage [Unknown]
